FAERS Safety Report 10574799 (Version 2)
Quarter: 2014Q4

REPORT INFORMATION
  Report Type: Report from Study
  Country: CA (occurrence: CA)
  Receive Date: 20141110
  Receipt Date: 20141110
  Transmission Date: 20150529
  Serious: Yes (Hospitalization)
  Sender: FDA-Public Use
  Company Number: CA-ABBVIE-11P-028-0697470-00

PATIENT
  Age: 40 Year
  Sex: Female
  Weight: 69.92 kg

DRUGS (3)
  1. HUMIRA [Suspect]
     Active Substance: ADALIMUMAB
     Route: 058
     Dates: end: 20110107
  2. PURINETHOL [Concomitant]
     Active Substance: MERCAPTOPURINE
     Indication: CROHN^S DISEASE
     Dates: start: 201008, end: 20101223
  3. HUMIRA [Suspect]
     Active Substance: ADALIMUMAB
     Indication: CROHN^S DISEASE
     Route: 058
     Dates: start: 20100224

REACTIONS (9)
  - Vision blurred [Not Recovered/Not Resolved]
  - Alopecia [Unknown]
  - Eye swelling [Not Recovered/Not Resolved]
  - Hypersensitivity [Unknown]
  - Gastrointestinal disorder [Unknown]
  - Rash [Unknown]
  - Vision blurred [Unknown]
  - Alopecia [Recovered/Resolved]
  - Rash [Unknown]

NARRATIVE: CASE EVENT DATE: 201006
